FAERS Safety Report 8444459-1 (Version None)
Quarter: 2012Q2

REPORT INFORMATION
  Report Type: 
  Country: None (occurrence: None)
  Receive Date: 20120618
  Receipt Date: 20120612
  Transmission Date: 20120825
  Serious: Yes (Hospitalization)
  Sender: FDA-Public Use
  Company Number: US-UCBSA-043575

PATIENT
  Age: 66 Year
  Sex: Male
  Weight: 72 kg

DRUGS (30)
  1. ASMANEX TWISTHALER [Concomitant]
     Dosage: 1.25,NEBULIZER
  2. PREDNISONE TAB [Concomitant]
     Dosage: DAILY DOSE-10 MG
  3. METAMUCIL-2 [Concomitant]
  4. CALCIUM [Concomitant]
     Indication: MINERAL SUPPLEMENTATION
     Dates: start: 20050101
  5. ZYRTEC [Concomitant]
     Indication: SEASONAL ALLERGY
     Dates: start: 20080101
  6. FIBER [Concomitant]
     Indication: CONSTIPATION
     Dosage: 1 TAB THREE TIMES DAILY
     Dates: start: 20060101
  7. PREDNISONE TAB [Concomitant]
     Indication: RHEUMATOID ARTHRITIS
     Dates: start: 20050101
  8. KLONOPIN [Concomitant]
     Indication: RESTLESS LEGS SYNDROME
     Dates: start: 20050101
  9. REGLAN [Concomitant]
     Dosage: WITH MEALS AND NIGHT TIME
  10. PRIMIDONE [Concomitant]
     Indication: ESSENTIAL TREMOR
     Dates: start: 20020101
  11. DEXILANT [Concomitant]
     Indication: GASTROOESOPHAGEAL REFLUX DISEASE
     Dates: start: 20090101
  12. ZANTAC [Concomitant]
     Dosage: DAILY DOSE-150 MG
  13. SPIRIVA [Concomitant]
     Indication: CHRONIC OBSTRUCTIVE PULMONARY DISEASE
     Dates: start: 20050101
  14. METHOTREXATE [Concomitant]
     Indication: RHEUMATOID ARTHRITIS
     Dates: start: 20100101
  15. GLYCOLAX [Concomitant]
     Indication: CONSTIPATION
     Dosage: ONE CAPFUL DAILY
  16. PRILOSEC [Concomitant]
  17. ZOCOR [Concomitant]
     Indication: HYPERCHOLESTEROLAEMIA
     Dates: start: 20050101
  18. AMBIEN [Concomitant]
     Indication: INSOMNIA
     Dosage: 10 MG AS NECESSARY
     Dates: start: 20050101
  19. ASMANEX TWISTHALER [Concomitant]
     Indication: CHRONIC OBSTRUCTIVE PULMONARY DISEASE
     Dates: start: 20050101
  20. LORCET-HD [Concomitant]
     Indication: RHEUMATOID ARTHRITIS
     Dosage: 10/650 MG
     Dates: start: 20100101
  21. FOSAMAX [Concomitant]
  22. NEXIUM [Concomitant]
  23. CIMZIA [Suspect]
     Indication: RHEUMATOID ARTHRITIS
     Dosage: 200 GM
     Route: 058
     Dates: start: 20110719, end: 20110928
  24. FLOMAX [Concomitant]
     Indication: PROSTATOMEGALY
     Dates: start: 20050101
  25. CALCIUM PLUS D [Concomitant]
  26. FOLIC ACID [Concomitant]
     Indication: VITAMIN SUPPLEMENTATION
     Dates: start: 20100101
  27. COLCHICINE [Concomitant]
     Indication: PROPHYLAXIS
     Dosage: 0.6 MG AS NECESSARY
     Dates: start: 20040101
  28. PROTONIX [Concomitant]
  29. XOPENEX [Concomitant]
     Indication: CHRONIC OBSTRUCTIVE PULMONARY DISEASE
     Dosage: 1.25/3 ML, THREE TIMES DAILY
     Dates: start: 20100630
  30. KAPIDEX [Concomitant]
     Dosage: DAILY DOSE-60 MG

REACTIONS (2)
  - POSTOPERATIVE WOUND INFECTION [None]
  - ABDOMINAL WOUND DEHISCENCE [None]
